FAERS Safety Report 10017758 (Version 1)
Quarter: 2014Q1

REPORT INFORMATION
  Report Type: Spontaneous
  Country: US (occurrence: US)
  Receive Date: 20140318
  Receipt Date: 20140318
  Transmission Date: 20141002
  Serious: No
  Sender: FDA-Public Use
  Company Number: US-BRISTOL-MYERS SQUIBB COMPANY-18808725

PATIENT
  Age: 48 Year
  Sex: Female

DRUGS (1)
  1. ERBITUX [Suspect]
     Indication: COLORECTAL CANCER
     Dosage: LAST DOSE ON 11MAR2013, 7 CYCLES
     Dates: start: 20121224

REACTIONS (1)
  - Conjunctivitis [Unknown]
